FAERS Safety Report 7206642-2 (Version None)
Quarter: 2011Q1

REPORT INFORMATION
  Report Type: 
  Country: None (occurrence: None)
  Receive Date: 20110103
  Receipt Date: 20101222
  Transmission Date: 20110831
  Serious: Yes (Hospitalization)
  Sender: FDA-Public Use
  Company Number: US-ELI_LILLY_AND_COMPANY-US201007004860

PATIENT
  Sex: Female

DRUGS (22)
  1. FORTEO [Suspect]
     Indication: OSTEOPOROSIS
     Dosage: 20 UG, DAILY (1/D)
     Route: 065
     Dates: start: 20100622
  2. FORTEO [Suspect]
     Dosage: 20 UG, DAILY (1/D)
  3. PREDNISONE [Concomitant]
     Dosage: 10 MG, WEEKLY (1/W)
     Route: 065
  4. AMLODIPINE BESYLATE [Concomitant]
     Indication: BLOOD PRESSURE
  5. ZOLPIDEM [Concomitant]
  6. SINGULAIR [Concomitant]
  7. ADVAIR [Concomitant]
  8. PREDNISONE [Concomitant]
     Dosage: 20 MG, WEEKLY (1/W)
     Route: 065
  9. FUROSEMIDE [Concomitant]
  10. ZOLOFT [Concomitant]
  11. XANAX [Concomitant]
  12. CALCIUM CITRATE W/VITAMIN D NOS [Concomitant]
  13. PREDNISONE [Concomitant]
     Dosage: 20 MG, WEEKLY (1/W)
     Route: 065
  14. VITAMIN D [Concomitant]
  15. MAGNESIUM OXIDE [Concomitant]
  16. OMEPRAZOLE [Concomitant]
  17. THEOPHYLLINE [Concomitant]
  18. SPIRIVA [Concomitant]
  19. LIPITOR [Concomitant]
  20. TRAZODONE [Concomitant]
  21. OXYCONTIN [Concomitant]
  22. ALBUTEROL [Concomitant]

REACTIONS (13)
  - CONTUSION [None]
  - BLOOD CALCIUM INCREASED [None]
  - CATARACT [None]
  - ABDOMINAL PAIN UPPER [None]
  - VOMITING [None]
  - NODULE [None]
  - NAUSEA [None]
  - HYPERTENSION [None]
  - EMPHYSEMA [None]
  - COMPRESSION FRACTURE [None]
  - ARTHRALGIA [None]
  - VISUAL ACUITY REDUCED [None]
  - PARAESTHESIA [None]
